FAERS Safety Report 15244633 (Version 1)
Quarter: 2018Q3

REPORT INFORMATION
  Report Type: Spontaneous
  Country: US (occurrence: US)
  Receive Date: 20180806
  Receipt Date: 20180806
  Transmission Date: 20181010
  Serious: Yes (Hospitalization, Other)
  Sender: FDA-Public Use
  Company Number: US-G+W LABS-GW2018US000085

PATIENT

DRUGS (2)
  1. ACETAMINOPHEN. [Suspect]
     Active Substance: ACETAMINOPHEN
     Indication: PYREXIA
     Dosage: 125 MG, QID X 3 DAYS
     Route: 054
  2. ACETAMINOPHEN. [Suspect]
     Active Substance: ACETAMINOPHEN
     Dosage: 120 MG, 4 4 HOURS X 7 DAYS
     Route: 048

REACTIONS (12)
  - Renal failure [Recovered/Resolved with Sequelae]
  - Liver disorder [Recovered/Resolved with Sequelae]
  - Encephalopathy [Recovered/Resolved with Sequelae]
  - Lung disorder [Recovered/Resolved]
  - Gene mutation [None]
  - Coagulopathy [Recovered/Resolved]
  - Liver transplant [Recovered/Resolved]
  - Hepatic necrosis [Recovered/Resolved]
  - Oropharyngeal pain [Recovered/Resolved]
  - Toxicity to various agents [Recovered/Resolved with Sequelae]
  - Acute hepatic failure [None]
  - Multi-organ disorder [Recovered/Resolved]
